FAERS Safety Report 5358505-5 (Version None)
Quarter: 2007Q2

REPORT INFORMATION
  Report Type: 
  Country: None (occurrence: None)
  Receive Date: 20070614
  Receipt Date: 20070614
  Transmission Date: 20071010
  Serious: Yes (Hospitalization)
  Sender: FDA-Public Use
  Company Number: None

PATIENT
  Age: 76 Year
  Sex: Male

DRUGS (1)
  1. AMBIEN [Suspect]
     Indication: SOMNOLENCE
     Dosage: 10 MG HS PO
     Route: 048

REACTIONS (4)
  - AGGRESSION [None]
  - DISORIENTATION [None]
  - DYSKINESIA [None]
  - DYSPNOEA EXERTIONAL [None]
